FAERS Safety Report 8827778 (Version 2)
Quarter: 2012Q4

REPORT INFORMATION
  Report Type: 
  Country: PR (occurrence: US)
  Receive Date: 20121008
  Receipt Date: 20121120
  Transmission Date: 20130627
  Serious: No
  Sender: FDA-Public Use
  Company Number: US-PFIZER INC-2012244012

PATIENT
  Sex: Male

DRUGS (7)
  1. VIAGRA [Suspect]
     Dosage: 100 mg, UNK
  2. METFORMIN [Concomitant]
     Dosage: 1000 mg, 2x/day
  3. MECLIZINE [Concomitant]
     Dosage: 25 mg, 2x/day
  4. IRBESARTAN [Concomitant]
     Dosage: 300 mg, UNK
  5. GLIMEPIRIDE [Concomitant]
     Dosage: 9 mg, UNK
  6. WELCHOL [Concomitant]
     Dosage: 3.75 g, Packet
  7. ASPIRIN [Concomitant]
     Dosage: 325 mg, UNK

REACTIONS (1)
  - Memory impairment [Unknown]
